FAERS Safety Report 25334822 (Version 1)
Quarter: 2025Q2

REPORT INFORMATION
  Report Type: Report from Study
  Country: AR (occurrence: AR)
  Receive Date: 20250520
  Receipt Date: 20250520
  Transmission Date: 20250716
  Serious: Yes (Other)
  Sender: BIOVITRUM
  Company Number: AR-AstraZeneca-CH-00870155A

PATIENT
  Sex: Male

DRUGS (1)
  1. PALIVIZUMAB [Suspect]
     Active Substance: PALIVIZUMAB
     Indication: Product used for unknown indication
     Route: 065

REACTIONS (1)
  - Cataract [Unknown]
